FAERS Safety Report 20341200 (Version 1)
Quarter: 2022Q1

REPORT INFORMATION
  Report Type: Spontaneous
  Country: US (occurrence: US)
  Receive Date: 20220117
  Receipt Date: 20220117
  Transmission Date: 20220424
  Serious: Yes (Other)
  Sender: FDA-Public Use
  Company Number: US-DSPHARMA-2022SUN000085

PATIENT
  Sex: Female

DRUGS (3)
  1. LATUDA [Suspect]
     Active Substance: LURASIDONE HYDROCHLORIDE
     Dosage: 160 MG, HS (TWO 80MG TABL)
     Route: 048
  2. ADDERALL [Concomitant]
     Active Substance: AMPHETAMINE ASPARTATE\AMPHETAMINE SULFATE\DEXTROAMPHETAMINE SACCHARATE\DEXTROAMPHETAMINE SULFATE
     Dosage: 45 MG(ONE AND A HALF 30MG TABL)
     Route: 048
  3. TRAZODONE [Concomitant]
     Active Substance: TRAZODONE HYDROCHLORIDE
     Dosage: 450 MG, HS (FOUR AND A HALF 100MG TABL)
     Route: 048

REACTIONS (18)
  - Mental impairment [Unknown]
  - Suicidal ideation [Unknown]
  - Flashback [Unknown]
  - Feeling of despair [Unknown]
  - Grandiosity [Unknown]
  - Asocial behaviour [Unknown]
  - Sleep-related eating disorder [Unknown]
  - Logorrhoea [Unknown]
  - Mood swings [Unknown]
  - Tachyphrenia [Unknown]
  - Mania [Unknown]
  - Psychomotor hyperactivity [Unknown]
  - Paranoia [Unknown]
  - Nightmare [Unknown]
  - Disturbance in attention [Unknown]
  - Depression [Unknown]
  - Anxiety [Unknown]
  - Panic attack [Unknown]
